FAERS Safety Report 9856334 (Version 2)
Quarter: 2014Q1

REPORT INFORMATION
  Report Type: Spontaneous
  Country: TR (occurrence: TR)
  Receive Date: 20140130
  Receipt Date: 20140130
  Transmission Date: 20141002
  Serious: Yes (Hospitalization, Other)
  Sender: FDA-Public Use
  Company Number: TR-VERTEX PHARMACEUTICALS INC-2013-010473

PATIENT
  Sex: 0

DRUGS (5)
  1. INCIVO [Suspect]
     Indication: CHRONIC HEPATITIS C
     Dosage: 750 MG, TID
  2. RIBAVIRIN [Suspect]
     Indication: CHRONIC HEPATITIS C
     Dosage: DOSAGE FORM: UNSPECIFIED
  3. PEGINTERFERON ALFA-2B [Suspect]
     Indication: CHRONIC HEPATITIS C
     Dosage: DOSAGE FORM: UNSPECIFIED
  4. PEGINTERFERON ALFA-2A [Suspect]
     Indication: CHRONIC HEPATITIS C
     Dosage: DOSAGE FORM: UNSPECIFIED
     Route: 065
  5. PARACETOMOL [Concomitant]
     Indication: PRODUCT USED FOR UNKNOWN INDICATION
     Dosage: DOSAGE FORM: UNSPECIFIED, 500 MG 3X1 (^LH^)
     Route: 065

REACTIONS (19)
  - Anorectal disorder [Unknown]
  - Dyspepsia [Unknown]
  - Neutropenia [Unknown]
  - Investigation [Unknown]
  - Weight decreased [Unknown]
  - Adverse event [Unknown]
  - Asthenia [Unknown]
  - Decreased appetite [Unknown]
  - Myalgia [Unknown]
  - Pyrexia [Unknown]
  - Headache [Unknown]
  - Vomiting [Unknown]
  - Diarrhoea [Unknown]
  - Syncope [Unknown]
  - Rash [Unknown]
  - Thrombocytopenia [Unknown]
  - Nausea [Unknown]
  - Anaemia [Unknown]
  - Pruritus [Unknown]
